FAERS Safety Report 7189900-X (Version None)
Quarter: 2010Q4

REPORT INFORMATION
  Report Type: 
  Country: None (occurrence: None)
  Receive Date: 20101223
  Receipt Date: 20101209
  Transmission Date: 20110411
  Serious: Yes (Other)
  Sender: FDA-Public Use
  Company Number: GB-RANBAXY-2010R1-40311

PATIENT
  Age: 48 Year
  Sex: Female
  Weight: 73.8 kg

DRUGS (8)
  1. RAMIPRIL [Suspect]
     Indication: PRODUCT USED FOR UNKNOWN INDICATION
     Dosage: UNK
     Route: 065
     Dates: start: 20101206
  2. RAMIPRIL [Suspect]
     Dosage: UNK
     Route: 065
     Dates: start: 20101118
  3. LEVOTHYROXINE [Concomitant]
     Indication: PRODUCT USED FOR UNKNOWN INDICATION
     Dosage: UNK
     Route: 065
     Dates: start: 20100803, end: 20100928
  4. LEVOTHYROXINE [Concomitant]
     Dosage: UNK
     Route: 065
     Dates: start: 20101118
  5. LEVOTHYROXINE [Concomitant]
     Dosage: UNK
     Route: 065
     Dates: start: 20100928, end: 20101123
  6. OILATUM [Concomitant]
     Indication: PRODUCT USED FOR UNKNOWN INDICATION
     Dosage: UNK
     Route: 065
     Dates: start: 20100803, end: 20100928
  7. OILATUM [Concomitant]
     Dosage: UNK
     Route: 065
     Dates: start: 20101118
  8. OILATUM [Concomitant]
     Dosage: UNK
     Route: 065
     Dates: start: 20100928, end: 20101123

REACTIONS (3)
  - DRY THROAT [None]
  - PRURITUS [None]
  - THIRST [None]
